FAERS Safety Report 23095818 (Version 1)
Quarter: 2023Q4

REPORT INFORMATION
  Report Type: Spontaneous
  Country: US (occurrence: None)
  Receive Date: 20231020
  Receipt Date: 20231020
  Transmission Date: 20240110
  Serious: Yes (unspecified)
  Sender: FDA-Public Use
  Company Number: None

PATIENT
  Sex: 0

DRUGS (1)
  1. KETAMINE [Suspect]
     Active Substance: KETAMINE
     Dosage: FREQUENCY : AT BEDTIME;?
     Route: 045

REACTIONS (4)
  - Impulsive behaviour [None]
  - Suicidal ideation [None]
  - Hallucination [None]
  - Dissociation [None]
